FAERS Safety Report 15956678 (Version 1)
Quarter: 2019Q1

REPORT INFORMATION
  Report Type: Spontaneous
  Country: US (occurrence: US)
  Receive Date: 20190122
  Receipt Date: 20190122
  Transmission Date: 20190417
  Serious: Yes (Hospitalization)
  Sender: FDA-Public Use
  Company Number: None

PATIENT
  Age: 61 Year
  Sex: Male
  Weight: 79.8 kg

DRUGS (1)
  1. PAZOPANIB (GW786034) [Suspect]
     Active Substance: PAZOPANIB
     Dates: end: 20181225

REACTIONS (3)
  - Inadequate analgesia [None]
  - Synovial sarcoma metastatic [None]
  - Malignant neoplasm progression [None]

NARRATIVE: CASE EVENT DATE: 20190115
